FAERS Safety Report 13909784 (Version 3)
Quarter: 2023Q4

REPORT INFORMATION
  Report Type: Report from Study
  Country: US (occurrence: US)
  Receive Date: 20170828
  Receipt Date: 20231026
  Transmission Date: 20240110
  Serious: Yes (Other)
  Sender: FDA-Public Use
  Company Number: US-AMGEN-USASL2017127735

PATIENT
  Sex: Female

DRUGS (2)
  1. ENBREL [Suspect]
     Active Substance: ETANERCEPT
     Indication: Juvenile idiopathic arthritis
     Dosage: 25 MG, QWK (0.8 ML WEEKLY, 20 MG)
     Route: 065
     Dates: start: 2016
  2. ENBREL [Suspect]
     Active Substance: ETANERCEPT
     Indication: Adenosine deaminase 2 deficiency
     Dosage: 37.5 MILLIGRAM
     Route: 065

REACTIONS (4)
  - Cerebral haemorrhage [Unknown]
  - Cerebrovascular accident [Unknown]
  - Therapeutic response unexpected [Unknown]
  - Product dose omission issue [Unknown]
